FAERS Safety Report 4979567-0 (Version None)
Quarter: 2006Q2

REPORT INFORMATION
  Report Type: 
  Country: None (occurrence: None)
  Receive Date: 20060421
  Receipt Date: 20060406
  Transmission Date: 20061013
  Serious: Yes (Hospitalization)
  Sender: FDA-Public Use
  Company Number: SE-ROCHE-443268

PATIENT
  Age: 43 Year
  Sex: Female

DRUGS (10)
  1. CELLCEPT [Suspect]
     Indication: RHEUMATOID ARTHRITIS
     Route: 048
     Dates: start: 20051230, end: 20060216
  2. MABTHERA [Suspect]
     Indication: DRUG USE FOR UNKNOWN INDICATION
     Route: 042
     Dates: end: 20060216
  3. NEORECORMON [Concomitant]
  4. METADON [Concomitant]
     Dosage: REPORTED AS METADON ALTERNOVA.
  5. OMEPRAZOLE [Concomitant]
     Dosage: REPORTED AS OMEPRAZOL ARROW.
  6. FOLACIN [Concomitant]
  7. ORALOVITE [Concomitant]
  8. TRANDATE [Concomitant]
  9. FURIX [Concomitant]
  10. ACETAMINOPHEN [Concomitant]
     Dosage: PANODIL FORTE.

REACTIONS (3)
  - BLOOD BILIRUBIN INCREASED [None]
  - RENAL FAILURE [None]
  - SKIN NECROSIS [None]
